FAERS Safety Report 7146435-8 (Version None)
Quarter: 2010Q4

REPORT INFORMATION
  Report Type: 
  Country: None (occurrence: None)
  Receive Date: 20101208
  Receipt Date: 20100930
  Transmission Date: 20110411
  Serious: No
  Sender: FDA-Public Use
  Company Number: US-BRISTOL-MYERS SQUIBB COMPANY-15313299

PATIENT
  Sex: Female

DRUGS (2)
  1. PRAVACHOL [Suspect]
  2. GLUCOVANCE [Suspect]

REACTIONS (3)
  - DIZZINESS [None]
  - HERPES ZOSTER [None]
  - RASH [None]
